FAERS Safety Report 5305060-1 (Version None)
Quarter: 2007Q2

REPORT INFORMATION
  Report Type: 
  Country: None (occurrence: None)
  Receive Date: 20070423
  Receipt Date: 20070411
  Transmission Date: 20071010
  Serious: Yes (Other)
  Sender: FDA-Public Use
  Company Number: US-PFIZER INC-2006154339

PATIENT
  Sex: Female
  Weight: 72.6 kg

DRUGS (2)
  1. CHANTIX [Suspect]
     Indication: SMOKING CESSATION THERAPY
     Route: 048
     Dates: start: 20061209, end: 20061212
  2. HYDROCODONE [Concomitant]
     Indication: PAIN
     Dosage: FREQ:AS NEEDED FOR PAIN

REACTIONS (7)
  - BIPOLAR DISORDER [None]
  - DECREASED APPETITE [None]
  - HEADACHE [None]
  - MENTAL IMPAIRMENT [None]
  - NAUSEA [None]
  - PRURITUS [None]
  - SUICIDAL IDEATION [None]
